FAERS Safety Report 20791577 (Version 1)
Quarter: 2022Q2

REPORT INFORMATION
  Report Type: Spontaneous
  Country: US (occurrence: US)
  Receive Date: 20220505
  Receipt Date: 20220505
  Transmission Date: 20220721
  Serious: Yes (Other)
  Sender: FDA-Public Use
  Company Number: US-C B Fleet Co Inc-202204-US-001443

PATIENT
  Sex: Female

DRUGS (2)
  1. MONISTAT TIOCONAZOLE 1 [Suspect]
     Active Substance: TIOCONAZOLE
     Indication: Fungal infection
     Dosage: ONCE
     Route: 067
  2. VITAMINS [Concomitant]
     Active Substance: VITAMINS

REACTIONS (2)
  - Abortion spontaneous [Recovered/Resolved]
  - Exposure during pregnancy [None]
